FAERS Safety Report 5905343-8 (Version None)
Quarter: 2008Q4

REPORT INFORMATION
  Report Type: 
  Country: None (occurrence: None)
  Receive Date: 20081001
  Receipt Date: 20080925
  Transmission Date: 20090506
  Serious: Yes (Other)
  Sender: FDA-Public Use
  Company Number: NL-AMGEN-US294627

PATIENT
  Age: 50 Year
  Sex: Female
  Weight: 89 kg

DRUGS (7)
  1. ENBREL [Suspect]
     Indication: PSORIASIS
     Route: 058
     Dates: start: 20070301
  2. ENBREL [Suspect]
     Route: 058
     Dates: start: 20080401, end: 20080601
  3. ENBREL [Suspect]
     Route: 058
     Dates: start: 20080101
  4. METOPROLOL TARTRATE [Concomitant]
  5. SIMVASTATIN [Concomitant]
  6. TRYPTIZOL [Concomitant]
  7. CHLORTHALIDONE [Concomitant]

REACTIONS (3)
  - BLOOD CHOLESTEROL INCREASED [None]
  - HYPERTRIGLYCERIDAEMIA [None]
  - RESPIRATORY TRACT INFECTION [None]
